FAERS Safety Report 10874210 (Version 3)
Quarter: 2022Q1

REPORT INFORMATION
  Report Type: Report from Study
  Country: US (occurrence: US)
  Receive Date: 20150227
  Receipt Date: 20220126
  Transmission Date: 20220424
  Serious: Yes (Hospitalization, Other)
  Sender: FDA-Public Use
  Company Number: US-009507513-1502USA012098

PATIENT
  Sex: Female

DRUGS (12)
  1. PROVENTIL [Suspect]
     Active Substance: ALBUTEROL
     Indication: Asthma
     Dosage: 2 PUFF AS NEEDED
     Route: 055
  2. PRINIVIL [Suspect]
     Active Substance: LISINOPRIL
     Indication: Palpitations
     Dosage: UNK
     Route: 048
     Dates: start: 2021, end: 2021
  3. PRINIVIL [Suspect]
     Active Substance: LISINOPRIL
     Indication: Tachycardia
  4. ALBUTEROL [Suspect]
     Active Substance: ALBUTEROL
  5. ALBUTEROL [Suspect]
     Active Substance: ALBUTEROL
     Dosage: UNK
  6. ALBUTEROL SULFATE [Suspect]
     Active Substance: ALBUTEROL SULFATE
     Dosage: UNK
  7. ADVAIR HFA [Concomitant]
     Active Substance: FLUTICASONE PROPIONATE\SALMETEROL XINAFOATE
     Dosage: 2 PUFFS DAILY
  8. LOSARTAN [Concomitant]
     Active Substance: LOSARTAN
     Dosage: UNK
  9. CARDIZEN [Concomitant]
     Dosage: UNK
  10. METFORMIN [Concomitant]
     Active Substance: METFORMIN HYDROCHLORIDE
     Dosage: 500 MG TWICE DAILY
  11. PREVACID [Concomitant]
     Active Substance: LANSOPRAZOLE
     Dosage: UNK
  12. PRAVASTATIN [Concomitant]
     Active Substance: PRAVASTATIN
     Dosage: UNK

REACTIONS (12)
  - Cardiac flutter [Unknown]
  - Palpitations [Unknown]
  - Tachycardia [Unknown]
  - Adverse event [Unknown]
  - Pain [Unknown]
  - Cardiac disorder [Unknown]
  - Heart rate increased [Unknown]
  - Tremor [Unknown]
  - Cough [Unknown]
  - Product dose omission issue [Unknown]
  - Device malfunction [Unknown]
  - Poor quality device used [Unknown]

NARRATIVE: CASE EVENT DATE: 20210101
